FAERS Safety Report 9278478 (Version 4)
Quarter: 2013Q3

REPORT INFORMATION
  Report Type: Spontaneous
  Country: IE (occurrence: IE)
  Receive Date: 20130508
  Receipt Date: 20130726
  Transmission Date: 20140515
  Serious: Yes (Hospitalization, Other)
  Sender: FDA-Public Use
  Company Number: IE-BAYER-2013-057116

PATIENT
  Age: 30 Year
  Sex: Female
  Weight: 65 kg

DRUGS (2)
  1. MIRENA [Suspect]
     Indication: CONTRACEPTION
     Dosage: 20 MCG/24HR, CONT
     Dates: start: 20130124, end: 20130124
  2. MIRENA [Suspect]
     Indication: CONTRACEPTION
     Dosage: 20 MCG/24HR, CONT
     Route: 015
     Dates: start: 20130128, end: 20130328

REACTIONS (17)
  - Uterine spasm [None]
  - Device difficult to use [None]
  - Urinary tract infection [None]
  - Abdominal pain lower [None]
  - Ectopic pregnancy with contraceptive device [Recovered/Resolved with Sequelae]
  - Abdominal pain [None]
  - Blood urine present [None]
  - Chills [None]
  - Proctalgia [None]
  - Drug ineffective [None]
  - Suprapubic pain [None]
  - Nausea [None]
  - Abdominal tenderness [None]
  - Abdominal tenderness [None]
  - Dysuria [None]
  - Blood urine present [None]
  - Protein urine present [None]
